FAERS Safety Report 4646506-1 (Version None)
Quarter: 2005Q2

REPORT INFORMATION
  Report Type: 
  Country: None (occurrence: None)
  Receive Date: 20050427
  Receipt Date: 20040621
  Transmission Date: 20051028
  Serious: No
  Sender: FDA-Public Use
  Company Number: US-GLAXOSMITHKLINE-A0515380A

PATIENT
  Age: 76 Year
  Sex: Male

DRUGS (8)
  1. FLOVENT [Suspect]
     Indication: ILL-DEFINED DISORDER
     Dosage: 220MCG TWICE PER DAY
     Route: 055
     Dates: start: 19990101
  2. SEREVENT [Concomitant]
  3. ATROVENT [Concomitant]
  4. ALBUTEROL [Concomitant]
  5. METOPROLOL TARTRATE [Concomitant]
  6. TEGRETOL [Concomitant]
  7. NIASPAN [Concomitant]
  8. ZANTAC [Concomitant]

REACTIONS (2)
  - DENTAL CARIES [None]
  - TOOTH FRACTURE [None]
